FAERS Safety Report 24215000 (Version 2)
Quarter: 2024Q4

REPORT INFORMATION
  Report Type: Report from Study
  Country: IN (occurrence: IN)
  Receive Date: 20240815
  Receipt Date: 20241024
  Transmission Date: 20250115
  Serious: Yes (Other)
  Sender: ROCHE
  Company Number: IN-ROCHE-10000038886

PATIENT
  Age: 76 Year
  Sex: Male
  Weight: 55 kg

DRUGS (1)
  1. POLIVY [Suspect]
     Active Substance: POLATUZUMAB VEDOTIN-PIIQ
     Indication: Diffuse large B-cell lymphoma
     Route: 042
     Dates: start: 20240720

REACTIONS (3)
  - Lower limb fracture [Unknown]
  - Off label use [Unknown]
  - Pathological fracture [Unknown]
